FAERS Safety Report 5535423-0 (Version None)
Quarter: 2007Q4

REPORT INFORMATION
  Report Type: 
  Country: None (occurrence: None)
  Receive Date: 20071206
  Receipt Date: 20040330
  Transmission Date: 20080405
  Serious: Yes (Hospitalization, Other)
  Sender: FDA-Public Use
  Company Number: US-PFIZER INC-2007100494

PATIENT
  Sex: Female

DRUGS (3)
  1. INSPRA [Suspect]
  2. ACCUPRIL [Suspect]
  3. LANOXIN [Suspect]

REACTIONS (3)
  - BLOOD PRESSURE DECREASED [None]
  - PANCREATITIS [None]
  - WEIGHT DECREASED [None]
